FAERS Safety Report 5044267-8 (Version None)
Quarter: 2006Q2

REPORT INFORMATION
  Report Type: 
  Country: None (occurrence: None)
  Receive Date: 20060629
  Receipt Date: 20060615
  Transmission Date: 20061013
  Serious: Yes (Hospitalization, Other)
  Sender: FDA-Public Use
  Company Number: 2006EU000201

PATIENT
  Age: 64 Year
  Sex: Female
  Weight: 54 kg

DRUGS (6)
  1. PROTOPIC [Suspect]
     Indication: DERMATITIS ATOPIC
     Dosage: SEE IMAGE
     Route: 061
     Dates: start: 20030526, end: 20031001
  2. PROTOPIC [Suspect]
     Indication: DERMATITIS ATOPIC
     Dosage: SEE IMAGE
     Route: 061
     Dates: start: 20040101, end: 20040701
  3. DESONIDE [Concomitant]
  4. DIPROSONE [Concomitant]
  5. HYDROCORTISONE (HYDROCORTISONE HYDROGEN SUCCINATE) [Concomitant]
  6. CYCLOSPORINE [Concomitant]

REACTIONS (8)
  - ACTINIC KERATOSIS [None]
  - BASAL CELL CARCINOMA [None]
  - DERMATITIS [None]
  - ECZEMA [None]
  - EPITHELIOMA [None]
  - HAIR FOLLICLE TUMOUR BENIGN [None]
  - LICHENIFICATION [None]
  - RASH VESICULAR [None]
